FAERS Safety Report 18654871 (Version 1)
Quarter: 2020Q4

REPORT INFORMATION
  Report Type: Spontaneous
  Country: US (occurrence: US)
  Receive Date: 20201223
  Receipt Date: 20201223
  Transmission Date: 20210114
  Serious: Yes (Other)
  Sender: FDA-Public Use
  Company Number: US-PFIZER INC-2020506033

PATIENT
  Age: 60 Year
  Sex: Male

DRUGS (2)
  1. BUPIVACAINE HCL [Suspect]
     Active Substance: BUPIVACAINE HYDROCHLORIDE
     Indication: LOCAL ANAESTHESIA
     Dosage: UNK; (1:1 MIXTURE OF 0.75%) (3.8-CM,25-G, SHARP NEEDLE)
     Route: 056
  2. MEPIVACAINE HCL [Suspect]
     Active Substance: MEPIVACAINE HYDROCHLORIDE
     Indication: ANAESTHESIA
     Dosage: UNK; (3.8-CM, 25-G, SHARP NEEDLE) RETROBULBAR INJECTION OF A 1:1 MIXTURE
     Route: 056

REACTIONS (1)
  - Retinal artery occlusion [Unknown]
